FAERS Safety Report 7309580 (Version 2)
Quarter: 2012Q4

REPORT INFORMATION
  Report Type: 
  Country: US (occurrence: US)
  Receive Date: 20100309
  Receipt Date: 20121119
  Transmission Date: 20130627
  Serious: Yes (Other)
  Sender: FDA-Public Use
  Company Number: US-ELI_LILLY_AND_COMPANY-US201003001382

PATIENT
  Sex: Female

DRUGS (11)
  1. HUMALOG 25% LISPRO, 75% NPL [Suspect]
     Dosage: 42 u, each morning
  2. HUMALOG 25% LISPRO, 75% NPL [Suspect]
     Dosage: 27 u, each evening
  3. HUMALOG 25% LISPRO, 75% NPL [Suspect]
     Dosage: 42 u, each morning
  4. HUMALOG 25% LISPRO, 75% NPL [Suspect]
     Dosage: 27 u, each evening
  5. HUMALOG 25% LISPRO, 75% NPL [Suspect]
     Dosage: 32 u, each morning
  6. HUMALOG 25% LISPRO, 75% NPL [Suspect]
     Dosage: UNK, prn
  7. HUMALOG 25% LISPRO, 75% NPL [Suspect]
     Dosage: 42 u, each morning
  8. HUMALOG 25% LISPRO, 75% NPL [Suspect]
     Dosage: 27 u, each evening
  9. HUMALOG 25% LISPRO, 75% NPL [Suspect]
     Dosage: 42 u, each morning
  10. HUMALOG 25% LISPRO, 75% NPL [Suspect]
     Dosage: 27 u, each evening
  11. METFORMIN [Concomitant]

REACTIONS (8)
  - Coronary artery bypass [Recovered/Resolved]
  - Macular degeneration [Not Recovered/Not Resolved]
  - Back pain [Not Recovered/Not Resolved]
  - Spinal osteoarthritis [Not Recovered/Not Resolved]
  - Dry eye [Unknown]
  - Feeling abnormal [Unknown]
  - Blood glucose decreased [Unknown]
  - Medication error [Unknown]
